FAERS Safety Report 6730988-5 (Version None)
Quarter: 2010Q2

REPORT INFORMATION
  Report Type: 
  Country: None (occurrence: None)
  Receive Date: 20100518
  Receipt Date: 20100510
  Transmission Date: 20101027
  Serious: Yes (Disabling, Other)
  Sender: FDA-Public Use
  Company Number: GB-PURDUE-GBR-2010-0006537

PATIENT
  Sex: Male

DRUGS (8)
  1. THEOPHYLLINE [Suspect]
     Dosage: UNK
     Route: 065
  2. COMTESS [Interacting]
     Dosage: UNK
     Route: 048
     Dates: start: 20090401, end: 20100301
  3. ALENDRONIC ACID [Concomitant]
     Route: 065
  4. BUDESONIDE [Concomitant]
     Route: 055
  5. METHOTREXATE [Concomitant]
     Route: 065
  6. PREDNISOLONE [Concomitant]
     Route: 065
  7. SALBUTAMOL [Concomitant]
     Route: 055
  8. SINEMET [Concomitant]
     Route: 065

REACTIONS (3)
  - DRUG INTERACTION [None]
  - NAUSEA [None]
  - RESPIRATORY DISORDER [None]
